FAERS Safety Report 7920015-6 (Version None)
Quarter: 2011Q4

REPORT INFORMATION
  Report Type: 
  Country: None (occurrence: None)
  Receive Date: 20111117
  Receipt Date: 20111109
  Transmission Date: 20120403
  Serious: Yes (Other)
  Sender: FDA-Public Use
  Company Number: US-BAYER-2011-109291

PATIENT
  Sex: Female
  Weight: 72.562 kg

DRUGS (5)
  1. IPRATROPIUM BROMIDE [Concomitant]
  2. NAPROXEN (ALEVE) [Suspect]
     Indication: ANALGESIC THERAPY
     Dosage: 1 DF, QD
     Route: 048
     Dates: start: 20111106
  3. SYMBICORT [Concomitant]
  4. ALBUTEROL [Concomitant]
  5. VENTOLIN [Concomitant]

REACTIONS (4)
  - CHEST PAIN [None]
  - DYSPNOEA [None]
  - SPEECH DISORDER [None]
  - OBSTRUCTIVE AIRWAYS DISORDER [None]
